FAERS Safety Report 9865960 (Version 2)
Quarter: 2014Q1

REPORT INFORMATION
  Report Type: Spontaneous
  Country: None (occurrence: US)
  Receive Date: 20140203
  Receipt Date: 20140203
  Transmission Date: 20141002
  Serious: No
  Sender: FDA-Public Use
  Company Number: US-ALLERGAN-1314203US

PATIENT
  Age: 93 Year
  Sex: Female

DRUGS (2)
  1. RESTASIS [Suspect]
     Indication: PRODUCT USED FOR UNKNOWN INDICATION
     Dosage: 2 GTT, SINGLE
     Route: 047
  2. EYE DROPS NOS [Concomitant]
     Indication: GLAUCOMA

REACTIONS (2)
  - Scleral hyperaemia [Recovered/Resolved]
  - Eye pain [Recovered/Resolved]
